FAERS Safety Report 5639326-2 (Version None)
Quarter: 2008Q1

REPORT INFORMATION
  Report Type: 
  Country: None (occurrence: None)
  Receive Date: 20080226
  Receipt Date: 20080214
  Transmission Date: 20080703
  Serious: Yes (Hospitalization, Other)
  Sender: FDA-Public Use
  Company Number: US-PFIZER INC-2007077705

PATIENT
  Sex: Male
  Weight: 81.8 kg

DRUGS (16)
  1. VIAGRA [Suspect]
     Indication: ERECTILE DYSFUNCTION
     Dates: start: 20030101, end: 20070101
  2. TESTOSTERONE [Suspect]
     Indication: BLOOD TESTOSTERONE DECREASED
  3. ANTI-DIABETICS [Concomitant]
  4. CARDIOVASCULAR SYSTEM DRUGS [Concomitant]
  5. ALL OTHER THERAPEUTIC PRODUCTS [Concomitant]
  6. ZINC [Concomitant]
  7. VITAMIN B COMPLEX CAP [Concomitant]
  8. DHEA [Concomitant]
  9. IODINE [Concomitant]
  10. CHROMIUM [Concomitant]
  11. AMARYL [Concomitant]
  12. VASOTEC [Concomitant]
  13. SPIRONOLACTONE [Concomitant]
  14. EFFEXOR XR [Concomitant]
  15. PREVACID [Concomitant]
  16. BENADRYL [Concomitant]

REACTIONS (17)
  - ADVERSE EVENT [None]
  - ANDROPAUSE [None]
  - BLOOD OSMOLARITY INCREASED [None]
  - BLOOD PRESSURE INCREASED [None]
  - BLOOD TESTOSTERONE DECREASED [None]
  - CRYING [None]
  - DEPRESSION [None]
  - DIVERTICULITIS [None]
  - DRUG INEFFECTIVE [None]
  - DYSARTHRIA [None]
  - FATIGUE [None]
  - FEELING COLD [None]
  - HEADACHE [None]
  - HOT FLUSH [None]
  - HYPERSOMNIA [None]
  - PAIN [None]
  - TYPE 2 DIABETES MELLITUS [None]
